FAERS Safety Report 8030503-2 (Version None)
Quarter: 2012Q1

REPORT INFORMATION
  Report Type: 
  Country: None (occurrence: None)
  Receive Date: 20120105
  Receipt Date: 20111221
  Transmission Date: 20120608
  Serious: Yes (Other)
  Sender: FDA-Public Use
  Company Number: 2011P1010616

PATIENT
  Age: 28 Year
  Sex: Female

DRUGS (1)
  1. ALBENDAZOLE (NO PREF. NAME) [Suspect]
     Indication: HELMINTHIC INFECTION
     Dosage: 400 MG;QD

REACTIONS (2)
  - HEPATITIS [None]
  - CONSTIPATION [None]
